FAERS Safety Report 25771111 (Version 1)
Quarter: 2025Q3

REPORT INFORMATION
  Report Type: Other
  Country: AU (occurrence: AU)
  Receive Date: 20250908
  Receipt Date: 20250908
  Transmission Date: 20251020
  Serious: Yes (Hospitalization, Other)
  Sender: OWLPHARMA CONSULTING
  Company Number: AU-Owlpharma Consulting, Lda.-2184038

PATIENT
  Age: 89 Year
  Sex: Male

DRUGS (5)
  1. PYRIDOSTIGMINE BROMIDE [Suspect]
     Active Substance: PYRIDOSTIGMINE BROMIDE
     Indication: Myasthenia gravis
  2. PREDNISOLONE [Concomitant]
     Active Substance: PREDNISOLONE
  3. DOXYCYCLINE [Concomitant]
     Active Substance: DOXYCYCLINE
  4. PENICILLIN G [Concomitant]
     Active Substance: PENICILLIN G
  5. IMMUNE GLOBULIN NOS [Suspect]
     Active Substance: IMMUNE GLOBULIN NOS

REACTIONS (1)
  - Arteriospasm coronary [Recovered/Resolved]
